FAERS Safety Report 21854080 (Version 2)
Quarter: 2023Q1

REPORT INFORMATION
  Report Type: Other
  Country: IN (occurrence: None)
  Receive Date: 20230112
  Receipt Date: 20230331
  Transmission Date: 20230418
  Serious: Yes (Other)
  Sender: FDA-Public Use
  Company Number: IN-ROCHE-3263115

PATIENT
  Age: 68 Year
  Sex: Male

DRUGS (1)
  1. TECENTRIQ [Suspect]
     Active Substance: ATEZOLIZUMAB
     Indication: Lung neoplasm malignant
     Dosage: INTERVAL 21 DAYS
     Route: 042
     Dates: start: 20221119

REACTIONS (2)
  - Pancytopenia [Unknown]
  - White blood cell count decreased [Unknown]
